FAERS Safety Report 6750353-4 (Version None)
Quarter: 2010Q2

REPORT INFORMATION
  Report Type: 
  Country: None (occurrence: None)
  Receive Date: 20100527
  Receipt Date: 20100513
  Transmission Date: 20101027
  Serious: Yes (Death, Hospitalization)
  Sender: FDA-Public Use
  Company Number: A-US2008-21456

PATIENT
  Age: 53 Year
  Sex: Female

DRUGS (26)
  1. TRACLEER [Suspect]
     Indication: PULMONARY HYPERTENSION
     Dosage: 125 MG, BID, ORAL
     Route: 048
     Dates: start: 20030923, end: 20090116
  2. VENTAVIS [Suspect]
     Indication: PULMONARY HYPERTENSION
     Dosage: RESPIRATORY
     Dates: start: 20080612
  3. SILDENAFIL CITRATE [Concomitant]
  4. ADVAIR (SALMETEROL XINAFOATE, FLUTICASONE PROPIONATE) [Concomitant]
  5. ALBUTEROL (SALBUTAMOL SULFATE) [Concomitant]
  6. LACTULOSE [Concomitant]
  7. OCEAN (SODIUM CHLORIDE, BENZYL ALCOHOL) [Concomitant]
  8. PLAVIX [Concomitant]
  9. INSULIN, REGULAR (INSULIN) [Concomitant]
  10. OXYCODONE HYDROCHLORIDE [Concomitant]
  11. FLONASE [Concomitant]
  12. PAROXETINE HCL [Concomitant]
  13. ZOCOR [Concomitant]
  14. DIGOXIN [Concomitant]
  15. LEVOXYL [Concomitant]
  16. SINGULAIR [Concomitant]
  17. TOPROL-XL [Concomitant]
  18. OXYCONTIN [Concomitant]
  19. COLACE (DOCUSATE SODIUM) [Concomitant]
  20. ALLOPURINOL [Concomitant]
  21. ASPIRIN [Concomitant]
  22. IRON (IRON) [Concomitant]
  23. BUMEX [Concomitant]
  24. NYSTATIN [Concomitant]
  25. LANTUS [Concomitant]
  26. NIFEDIPINE [Concomitant]

REACTIONS (12)
  - ACUTE RESPIRATORY FAILURE [None]
  - ASTHENIA [None]
  - DEHYDRATION [None]
  - DIABETES MELLITUS INADEQUATE CONTROL [None]
  - EJECTION FRACTION DECREASED [None]
  - FATIGUE [None]
  - HYPOTENSION [None]
  - IRON DEFICIENCY [None]
  - MUSCLE SPASMS [None]
  - PAIN IN EXTREMITY [None]
  - RENAL FAILURE ACUTE [None]
  - VENTRICULAR HYPERTROPHY [None]
